FAERS Safety Report 6912753-9 (Version None)
Quarter: 2010Q3

REPORT INFORMATION
  Report Type: 
  Country: None (occurrence: None)
  Receive Date: 20100806
  Receipt Date: 20081104
  Transmission Date: 20110219
  Serious: No
  Sender: FDA-Public Use
  Company Number: US-PFIZER INC-2008094243

PATIENT

DRUGS (2)
  1. VFEND [Suspect]
     Indication: INFECTION
     Dosage: 200 MG, 2X/DAY
     Route: 042
  2. VFEND [Suspect]
     Dosage: 200 MG, 3X/DAY
     Route: 048

REACTIONS (1)
  - DRUG LEVEL BELOW THERAPEUTIC [None]
